FAERS Safety Report 16452059 (Version 1)
Quarter: 2019Q2

REPORT INFORMATION
  Report Type: Spontaneous
  Country: US (occurrence: US)
  Receive Date: 20190619
  Receipt Date: 20190619
  Transmission Date: 20190711
  Serious: No
  Sender: FDA-Public Use
  Company Number: US-GLAXOSMITHKLINE-US2019107665

PATIENT
  Age: 81 Year
  Sex: Female

DRUGS (1)
  1. FLONASE SENSIMIST ALLERGY RELIEF [Suspect]
     Active Substance: FLUTICASONE FUROATE
     Indication: NASAL CONGESTION
     Dosage: UNK UNK, QD
     Route: 045
     Dates: start: 201711

REACTIONS (4)
  - Vision blurred [Not Recovered/Not Resolved]
  - Incorrect product administration duration [Unknown]
  - Contraindicated product administered [Unknown]
  - Visual impairment [Not Recovered/Not Resolved]
